FAERS Safety Report 4942847-9 (Version None)
Quarter: 2006Q1

REPORT INFORMATION
  Report Type: 
  Country: None (occurrence: None)
  Receive Date: 20060309
  Receipt Date: 20060224
  Transmission Date: 20060701
  Serious: Yes (Hospitalization)
  Sender: FDA-Public Use
  Company Number: 2006029204

PATIENT
  Age: 61 Year
  Sex: Female
  Weight: 57 kg

DRUGS (3)
  1. SUTENT [Suspect]
     Indication: GASTROINTESTINAL STROMAL TUMOUR
     Dosage: (50 MG, ONCE), ORAL
     Route: 048
     Dates: start: 20051122
  2. ACETAMINOPHEN [Concomitant]
  3. METOCLOPRAMIDE [Concomitant]

REACTIONS (2)
  - PERFORMANCE STATUS DECREASED [None]
  - VERTIGO [None]
